FAERS Safety Report 5635751-4 (Version None)
Quarter: 2008Q1

REPORT INFORMATION
  Report Type: 
  Country: None (occurrence: None)
  Receive Date: 20080220
  Receipt Date: 20080208
  Transmission Date: 20080703
  Serious: No
  Sender: FDA-Public Use
  Company Number: 2008-171870-NL

PATIENT
  Age: 43 Year
  Sex: Female

DRUGS (12)
  1. FOLLITROPIN BETA [Suspect]
     Indication: IN VITRO FERTILISATION
     Dosage: 150 IU, INTRAMUSCULAR
     Route: 030
     Dates: start: 20070625, end: 20070625
  2. FOLLITROPIN BETA [Suspect]
     Indication: IN VITRO FERTILISATION
     Dosage: 150 IU, INTRAMUSCULAR
     Route: 030
     Dates: start: 20070627, end: 20070627
  3. FOLLITROPIN BETA [Suspect]
     Indication: IN VITRO FERTILISATION
     Dosage: 150 IU, INTRAMUSCULAR
     Route: 030
     Dates: start: 20070629, end: 20070703
  4. MENOTROPINS [Suspect]
     Indication: IN VITRO FERTILISATION
     Dosage: 300 IU,  INTRAMUSCULAR
     Route: 030
     Dates: start: 20070701, end: 20070705
  5. CLOMIPHENE CITRATE [Suspect]
     Indication: IN VITRO FERTILISATION
     Dosage: 100 MG, ORAL
     Route: 048
     Dates: start: 20070625, end: 20070629
  6. CLOMIPHENE CITRATE [Suspect]
     Indication: IN VITRO FERTILISATION
     Dosage: 100 MG, ORAL
     Route: 048
     Dates: start: 20070702, end: 20070705
  7. PREDNISOLONE [Concomitant]
  8. BUFFERIN [Concomitant]
  9. CETRORELIX  ACETATE [Concomitant]
  10. SHIREITOU (TRADITIONAL CHINESE MEDICINE) [Concomitant]
  11. PROGESTERONE [Concomitant]
  12. TOCOPHERYL NICOTINATE [Concomitant]

REACTIONS (3)
  - ABORTION SPONTANEOUS [None]
  - DRUG EXPOSURE DURING PREGNANCY [None]
  - PREGNANCY [None]
